FAERS Safety Report 19134546 (Version 1)
Quarter: 2021Q2

REPORT INFORMATION
  Report Type: Spontaneous
  Country: US (occurrence: US)
  Receive Date: 20210414
  Receipt Date: 20210414
  Transmission Date: 20210717
  Serious: Yes (Life-Threatening, Other)
  Sender: FDA-Public Use
  Company Number: US-PFIZER INC-2021372701

PATIENT
  Age: 34 Year
  Sex: Female
  Weight: 71 kg

DRUGS (6)
  1. SUCCINYLCHOLINE CHLORIDE. [Suspect]
     Active Substance: SUCCINYLCHOLINE CHLORIDE
     Indication: ANAESTHESIA
     Dosage: 100 MG
     Route: 042
  2. BUTORPHANOL [Concomitant]
     Active Substance: BUTORPHANOL
     Dosage: 2 MG
     Route: 042
  3. CEFAZOLIN [Concomitant]
     Active Substance: CEFAZOLIN
     Dosage: 2 G
     Route: 042
  4. HALOTHANE. [Concomitant]
     Active Substance: HALOTHANE
     Indication: ANAESTHESIA
     Dosage: UNK (0.5%)
  5. THIAMYLAL [Concomitant]
     Active Substance: THIAMYLAL
     Indication: ANAESTHESIA
     Dosage: 200 MG
  6. OXYGEN. [Concomitant]
     Active Substance: OXYGEN
     Indication: ANAESTHESIA
     Dosage: UNK (3:3)

REACTIONS (2)
  - Respiratory depression [Unknown]
  - Maternal exposure during pregnancy [Unknown]
